FAERS Safety Report 4727546-0 (Version None)
Quarter: 2005Q3

REPORT INFORMATION
  Report Type: 
  Country: None (occurrence: None)
  Receive Date: 20050728
  Receipt Date: 20050728
  Transmission Date: 20060218
  Serious: No
  Sender: FDA-Public Use
  Company Number: None

PATIENT
  Age: 86 Year
  Sex: Male
  Weight: 63.05 kg

DRUGS (2)
  1. DONEPIZIL 5MG EISAI/PFIZER [Suspect]
     Indication: CEREBROVASCULAR DISORDER
     Dosage: 5MG QAM ORAL
     Route: 048
  2. DONEPIZIL 5MG EISAI/PFIZER [Suspect]
     Indication: COGNITIVE DISORDER
     Dosage: 5MG QAM ORAL
     Route: 048

REACTIONS (1)
  - DIARRHOEA [None]
